FAERS Safety Report 9507839 (Version 2)
Quarter: 2013Q3

REPORT INFORMATION
  Report Type: Spontaneous
  Country: US (occurrence: US)
  Receive Date: 20130909
  Receipt Date: 20130923
  Transmission Date: 20140515
  Serious: Yes (Other)
  Sender: FDA-Public Use
  Company Number: US-PFIZER INC-2013254828

PATIENT
  Age: 74 Year
  Sex: Male
  Weight: 55.78 kg

DRUGS (3)
  1. VIAGRA [Suspect]
     Indication: ERECTILE DYSFUNCTION
     Dosage: 50 MG, AS NEEDED
     Route: 048
  2. ASPIRIN [Concomitant]
     Dosage: 240 MG, 1X/DAY
  3. IRON [Concomitant]
     Dosage: 50 MG, 1X/DAY

REACTIONS (3)
  - Rectal haemorrhage [Recovered/Resolved]
  - Haemorrhoids [Recovered/Resolved]
  - Drug ineffective [Unknown]
